FAERS Safety Report 24007191 (Version 1)
Quarter: 2024Q2

REPORT INFORMATION
  Report Type: Report from Study
  Country: JP (occurrence: JP)
  Receive Date: 20240624
  Receipt Date: 20240624
  Transmission Date: 20240716
  Serious: Yes (Other)
  Sender: FDA-Public Use
  Company Number: JP-SA-2024SA179153

PATIENT
  Age: 72 Year
  Sex: Male
  Weight: 58.1 kg

DRUGS (2)
  1. SUTIMLIMAB [Suspect]
     Active Substance: SUTIMLIMAB
     Indication: Cold type haemolytic anaemia
     Dosage: 6.5 G, QW
     Route: 041
     Dates: start: 20221116, end: 20221123
  2. SUTIMLIMAB [Suspect]
     Active Substance: SUTIMLIMAB
     Dosage: 6.5 G, QOW
     Route: 041
     Dates: start: 20221207, end: 20230201

REACTIONS (2)
  - Cold type haemolytic anaemia [Unknown]
  - Condition aggravated [Unknown]
